FAERS Safety Report 24984611 (Version 1)
Quarter: 2025Q1

REPORT INFORMATION
  Report Type: Report from Study
  Country: US (occurrence: US)
  Receive Date: 20250219
  Receipt Date: 20250219
  Transmission Date: 20250408
  Serious: Yes (Hospitalization, Other)
  Sender: SUNOVION
  Company Number: US-SMPA-2025SPA001019

PATIENT

DRUGS (19)
  1. ORGOVYX [Suspect]
     Active Substance: RELUGOLIX
     Indication: Prostate cancer
     Dosage: 360 MG, SINGLE
     Route: 048
  2. ORGOVYX [Suspect]
     Active Substance: RELUGOLIX
     Dosage: 120 MG, QD
     Route: 048
  3. DILTIAZEM [Concomitant]
     Active Substance: DILTIAZEM
     Route: 065
  4. Doans [Concomitant]
     Route: 065
  5. ELIQUIS [Concomitant]
     Active Substance: APIXABAN
     Route: 065
  6. GABAPENTIN [Concomitant]
     Active Substance: GABAPENTIN
     Route: 065
  7. IMODIUM [Concomitant]
     Active Substance: LOPERAMIDE HYDROCHLORIDE
     Route: 065
  8. LOSARTAN POTASSIUM [Concomitant]
     Active Substance: LOSARTAN POTASSIUM
     Route: 065
  9. Melatonin + tart cherry [Concomitant]
     Route: 065
  10. METFORMIN [Concomitant]
     Active Substance: METFORMIN HYDROCHLORIDE
     Route: 065
  11. METHOCARBAMOL [Concomitant]
     Active Substance: METHOCARBAMOL
     Route: 065
  12. OMEPRAZOLE\SODIUM BICARBONATE [Concomitant]
     Active Substance: OMEPRAZOLE\SODIUM BICARBONATE
     Route: 065
  13. PROMETHAZINE [Concomitant]
     Active Substance: PROMETHAZINE HYDROCHLORIDE
     Route: 065
  14. Rosuvastatin + ezetimibe/velka [Concomitant]
     Route: 065
  15. TAMSULOSIN HYDROCHLORIDE [Concomitant]
     Active Substance: TAMSULOSIN HYDROCHLORIDE
     Route: 065
  16. SUTAB [Concomitant]
     Active Substance: MAGNESIUM SULFATE\POTASSIUM CHLORIDE\SODIUM SULFATE
     Route: 065
  17. TIZANIDINE ARROW [Concomitant]
     Route: 065
  18. TYLENOL [Concomitant]
     Active Substance: ACETAMINOPHEN
     Route: 065
  19. VITAMIN D3 [Concomitant]
     Active Substance: CHOLECALCIFEROL
     Route: 065

REACTIONS (1)
  - Cerebrovascular accident [Unknown]

NARRATIVE: CASE EVENT DATE: 20250124
